FAERS Safety Report 25863500 (Version 1)
Quarter: 2025Q3

REPORT INFORMATION
  Report Type: Spontaneous
  Country: JP (occurrence: JP)
  Receive Date: 20250930
  Receipt Date: 20250930
  Transmission Date: 20251021
  Serious: Yes (Hospitalization)
  Sender: MYLAN
  Company Number: JP-MYLANLABS-2025M1081476

PATIENT
  Age: 69 Year
  Sex: Female

DRUGS (4)
  1. CELECOXIB [Suspect]
     Active Substance: CELECOXIB
     Indication: Product used for unknown indication
  2. CELECOXIB [Suspect]
     Active Substance: CELECOXIB
     Route: 048
  3. CELECOXIB [Suspect]
     Active Substance: CELECOXIB
     Route: 048
  4. CELECOXIB [Suspect]
     Active Substance: CELECOXIB

REACTIONS (1)
  - Interstitial lung disease [Unknown]
